FAERS Safety Report 4822331-3 (Version None)
Quarter: 2005Q4

REPORT INFORMATION
  Report Type: 
  Country: None (occurrence: None)
  Receive Date: 20051103
  Receipt Date: 20051020
  Transmission Date: 20060501
  Serious: Yes (Death)
  Sender: FDA-Public Use
  Company Number: 2005101M000642

PATIENT
  Sex: Female

DRUGS (1)
  1. INFERGEN [Suspect]
     Indication: HEPATITIS C
     Dosage: 15 UG, SUBCUTANEOUS
     Route: 058

REACTIONS (1)
  - UROSEPSIS [None]
